FAERS Safety Report 18171889 (Version 1)
Quarter: 2020Q3

REPORT INFORMATION
  Report Type: Report from Study
  Country: CA (occurrence: CA)
  Receive Date: 20200819
  Receipt Date: 20200819
  Transmission Date: 20201103
  Serious: Yes (Hospitalization)
  Sender: FDA-Public Use
  Company Number: CA-BAUSCH-BL-2020-023016

PATIENT
  Sex: Female

DRUGS (5)
  1. PENICILLIN G [Suspect]
     Active Substance: PENICILLIN G
     Indication: PRODUCT USED FOR UNKNOWN INDICATION
     Route: 065
  2. CEFUROXIME AXETIL. [Suspect]
     Active Substance: CEFUROXIME AXETIL
     Indication: PRODUCT USED FOR UNKNOWN INDICATION
     Route: 065
  3. SALBUTAMOL SULFATE [Suspect]
     Active Substance: ALBUTEROL SULFATE
     Indication: PRODUCT USED FOR UNKNOWN INDICATION
     Route: 065
  4. SYMBICORT [Suspect]
     Active Substance: BUDESONIDE\FORMOTEROL FUMARATE DIHYDRATE
     Indication: PRODUCT USED FOR UNKNOWN INDICATION
     Route: 065
  5. NAPROXEN. [Suspect]
     Active Substance: NAPROXEN
     Indication: PRODUCT USED FOR UNKNOWN INDICATION
     Route: 065

REACTIONS (9)
  - Fibromyalgia [Unknown]
  - Hypersensitivity [Unknown]
  - Asthma [Unknown]
  - Sleep disorder due to a general medical condition [Unknown]
  - Adverse drug reaction [Unknown]
  - Blood count abnormal [Unknown]
  - Dyspnoea [Unknown]
  - Loss of personal independence in daily activities [Unknown]
  - Oxygen saturation abnormal [Unknown]
